FAERS Safety Report 5711217-8 (Version None)
Quarter: 2008Q2

REPORT INFORMATION
  Report Type: 
  Country: None (occurrence: None)
  Receive Date: 20080417
  Receipt Date: 20080417
  Transmission Date: 20081010
  Serious: Yes (Death)
  Sender: FDA-Public Use
  Company Number: None

PATIENT
  Age: 51 Year
  Sex: Male
  Weight: 106 kg

DRUGS (2)
  1. CCI-779 (TEMSIROLIMUS) [Suspect]
     Indication: MULTIPLE MYELOMA
     Dosage: 25 MG/M2 WEEKLY
     Dates: start: 20080325, end: 20080408
  2. VELCADE [Suspect]
     Indication: MULTIPLE MYELOMA
     Dosage: 1.6MG/M2 WEEKLY FOR 4
     Dates: start: 20080325, end: 20080408

REACTIONS (10)
  - ACUTE MYOCARDIAL INFARCTION [None]
  - BLOOD CREATININE INCREASED [None]
  - CHILLS [None]
  - HAEMOGLOBIN DECREASED [None]
  - NEUTROPHIL COUNT DECREASED [None]
  - PLATELET COUNT DECREASED [None]
  - PLEURAL EFFUSION [None]
  - PULMONARY OEDEMA [None]
  - SKIN DISCOLOURATION [None]
  - UNRESPONSIVE TO STIMULI [None]
